FAERS Safety Report 5823511-0 (Version None)
Quarter: 2008Q3

REPORT INFORMATION
  Report Type: 
  Country: None (occurrence: None)
  Receive Date: 20080725
  Receipt Date: 20080715
  Transmission Date: 20090109
  Serious: Yes (Hospitalization, Other)
  Sender: FDA-Public Use
  Company Number: ES-GILEAD-2008-0017262

PATIENT
  Age: 40 Year
  Sex: Male

DRUGS (14)
  1. VIREAD [Suspect]
     Indication: HIV INFECTION
     Route: 048
     Dates: start: 20080408
  2. EPIVIR [Suspect]
     Indication: HIV INFECTION
     Route: 048
     Dates: start: 20080408
  3. NORVIR [Suspect]
     Indication: HIV INFECTION
     Route: 048
     Dates: start: 20071113
  4. REYATAZ [Suspect]
     Indication: HIV INFECTION
     Route: 048
     Dates: start: 20071113
  5. VINBLASTINA [Suspect]
     Indication: HODGKIN'S DISEASE
     Route: 042
     Dates: start: 20080409, end: 20080409
  6. VINBLASTINA [Suspect]
     Route: 042
     Dates: start: 20080502, end: 20080502
  7. DOXORUBICINA [Suspect]
     Indication: HODGKIN'S DISEASE
     Route: 042
     Dates: start: 20080409, end: 20080409
  8. DOXORUBICINA [Suspect]
     Route: 042
     Dates: start: 20080502, end: 20080502
  9. DACARBAZINA [Suspect]
     Indication: HODGKIN'S DISEASE
     Route: 042
     Dates: start: 20080409, end: 20080409
  10. DACARBAZINA [Suspect]
     Route: 042
     Dates: start: 20080502, end: 20080502
  11. BLEOMYCINA MERCK [Suspect]
     Indication: HODGKIN'S DISEASE
     Route: 042
     Dates: start: 20080409, end: 20080409
  12. BLEOMYCINA MERCK [Suspect]
     Route: 042
     Dates: start: 20080502, end: 20080502
  13. FILGRASTIM [Concomitant]
     Indication: PROPHYLAXIS
     Dates: start: 20080409, end: 20080415
  14. FILGRASTIM [Concomitant]
     Dates: start: 20080502, end: 20080508

REACTIONS (2)
  - ILEUS PARALYTIC [None]
  - NEUTROPENIA [None]
